FAERS Safety Report 8376635-0 (Version None)
Quarter: 2012Q2

REPORT INFORMATION
  Report Type: 
  Country: None (occurrence: None)
  Receive Date: 20120522
  Receipt Date: 20120521
  Transmission Date: 20120825
  Serious: Yes (Hospitalization, Other)
  Sender: FDA-Public Use
  Company Number: US-PFIZER INC-2012113341

PATIENT
  Sex: Male

DRUGS (4)
  1. TYVASO [Suspect]
     Dosage: UNK
  2. REVATIO [Suspect]
     Dosage: UNK
  3. LETAIRIS [Suspect]
     Indication: CHRONIC OBSTRUCTIVE PULMONARY DISEASE
  4. LETAIRIS [Suspect]
     Indication: PULMONARY HYPERTENSION
     Dosage: 10 MG, UNK
     Route: 048
     Dates: start: 20120329

REACTIONS (3)
  - DYSPNOEA [None]
  - HYPOXIA [None]
  - VENTILATION PERFUSION MISMATCH [None]
